FAERS Safety Report 4297476-X (Version None)
Quarter: 2004Q1

REPORT INFORMATION
  Report Type: 
  Country: None (occurrence: None)
  Receive Date: 20040218
  Receipt Date: 20040210
  Transmission Date: 20041129
  Serious: Yes (Death, Other)
  Sender: FDA-Public Use
  Company Number: CA-GLAXOSMITHKLINE-A0497589A

PATIENT

DRUGS (1)
  1. LAMICTAL [Suspect]
     Indication: ILL-DEFINED DISORDER

REACTIONS (3)
  - DEATH [None]
  - MEDICATION ERROR [None]
  - STEVENS-JOHNSON SYNDROME [None]
